FAERS Safety Report 16826663 (Version 1)
Quarter: 2019Q3

REPORT INFORMATION
  Report Type: Spontaneous
  Country: FR (occurrence: FR)
  Receive Date: 20190919
  Receipt Date: 20190919
  Transmission Date: 20191005
  Serious: Yes (Hospitalization)
  Sender: FDA-Public Use
  Company Number: PHHY2019FR215422

PATIENT
  Age: 74 Year
  Sex: Female
  Weight: 102 kg

DRUGS (11)
  1. METFORMIN HYDROCHLORIDE. [Suspect]
     Active Substance: METFORMIN HYDROCHLORIDE
     Indication: DIABETES MELLITUS
     Dosage: 2550 MG, QD
     Route: 048
     Dates: end: 201908
  2. LEVOTHYROX [Suspect]
     Active Substance: LEVOTHYROXINE
     Indication: HYPOTHYROIDISM
     Dosage: 1 DF, QD
     Route: 048
  3. FUMAFER [Suspect]
     Active Substance: FERROUS FUMARATE
     Indication: ANAEMIA
     Dosage: 2 DF, QD
     Route: 048
     Dates: end: 201908
  4. SPECIAFOLDINE [Suspect]
     Active Substance: FOLIC ACID
     Indication: PRODUCT USED FOR UNKNOWN INDICATION
     Dosage: 2 DF, QD
     Route: 048
     Dates: end: 20190822
  5. BISOPROLOL [Suspect]
     Active Substance: BISOPROLOL
     Indication: HYPERTENSION
     Dosage: UNK
     Route: 048
  6. FUNGIZONE [Suspect]
     Active Substance: AMPHOTERICIN B
     Indication: PRODUCT USED FOR UNKNOWN INDICATION
     Dosage: UNK
     Route: 065
  7. LOVENOX [Suspect]
     Active Substance: ENOXAPARIN SODIUM
     Indication: THROMBOSIS PROPHYLAXIS
     Dosage: 5000 IU, BID
     Route: 058
     Dates: start: 20190611, end: 20190808
  8. PANTOPRAZOLE [Suspect]
     Active Substance: PANTOPRAZOLE
     Indication: PRODUCT USED FOR UNKNOWN INDICATION
     Dosage: 1 DF, QD
     Route: 048
  9. CEFTAZIDIME. [Suspect]
     Active Substance: CEFTAZIDIME
     Indication: ARTHRITIS INFECTIVE
     Dosage: 6 G, QD
     Route: 042
     Dates: start: 20190730, end: 20190809
  10. APROVEL [Suspect]
     Active Substance: IRBESARTAN
     Indication: HYPERTENSION
     Dosage: 1 DF, QD
     Route: 048
     Dates: end: 201908
  11. ULTRA LEVURE [Suspect]
     Active Substance: SACCHAROMYCES CEREVISIAE
     Indication: PRODUCT USED FOR UNKNOWN INDICATION
     Dosage: 1 DF, QD
     Route: 048
     Dates: end: 201908

REACTIONS (1)
  - Acute kidney injury [Not Recovered/Not Resolved]

NARRATIVE: CASE EVENT DATE: 20190807
